FAERS Safety Report 6190550-2 (Version None)
Quarter: 2009Q2

REPORT INFORMATION
  Report Type: 
  Country: None (occurrence: None)
  Receive Date: 20090514
  Receipt Date: 20090417
  Transmission Date: 20091009
  Serious: Yes (Other)
  Sender: FDA-Public Use
  Company Number: BR-PFIZER INC-2009200040

PATIENT
  Age: 55 Year

DRUGS (1)
  1. CHAMPIX [Suspect]
     Indication: TOBACCO USER
     Dosage: UNKNOWN

REACTIONS (4)
  - ABDOMINAL RIGIDITY [None]
  - EARLY SATIETY [None]
  - GASTRIC DILATATION [None]
  - NAUSEA [None]
